FAERS Safety Report 15865992 (Version 1)
Quarter: 2019Q1

REPORT INFORMATION
  Report Type: Spontaneous
  Country: CA (occurrence: CA)
  Receive Date: 20190125
  Receipt Date: 20190125
  Transmission Date: 20190417
  Serious: Yes (Other)
  Sender: FDA-Public Use
  Company Number: CA-TEVA-2019-CA-1003906

PATIENT
  Age: 73 Year
  Sex: Female

DRUGS (2)
  1. MOXIFLOXACIN. [Concomitant]
     Active Substance: MOXIFLOXACIN
     Route: 065
  2. NOVO-PREDNISONE [Suspect]
     Active Substance: PREDNISONE
     Indication: BRONCHITIS
     Dosage: 50 MILLIGRAM DAILY;
     Route: 048

REACTIONS (2)
  - Urinary retention [Unknown]
  - Oedema peripheral [Unknown]
